FAERS Safety Report 4704832-1 (Version None)
Quarter: 2005Q2

REPORT INFORMATION
  Report Type: 
  Country: None (occurrence: None)
  Receive Date: 20050630
  Receipt Date: 20050630
  Transmission Date: 20051028
  Serious: Yes (Hospitalization)
  Sender: FDA-Public Use
  Company Number: None

PATIENT
  Age: 55 Year
  Sex: Female
  Weight: 77 kg

DRUGS (1)
  1. BENAZEPRIL HCL [Suspect]
     Indication: HYPERTENSION
     Dosage: 20MG   EVERY DAY   ORAL
     Route: 048

REACTIONS (2)
  - ANGIONEUROTIC OEDEMA [None]
  - DRUG HYPERSENSITIVITY [None]
